FAERS Safety Report 9603790 (Version 3)
Quarter: 2013Q4

REPORT INFORMATION
  Report Type: Report from Study
  Country: CA (occurrence: CA)
  Receive Date: 20131008
  Receipt Date: 20131009
  Transmission Date: 20140711
  Serious: Yes (Death, Other)
  Sender: FDA-Public Use
  Company Number: CA-ROCHE-1156717

PATIENT
  Age: 11 Year
  Sex: Male
  Weight: 34 kg

DRUGS (9)
  1. AVASTIN [Suspect]
     Indication: ANAPLASTIC ASTROCYTOMA
     Dosage: LAST DOSE OF BEVACIZUMAB WAS ADMINISTERED ON 02/AUG/2013.
     Route: 042
     Dates: start: 20120917, end: 20130802
  2. AVASTIN [Suspect]
     Indication: BRAIN NEOPLASM
  3. AVASTIN [Suspect]
     Indication: GLIOBLASTOMA MULTIFORME
  4. TEMOZOLOMIDE [Suspect]
     Indication: BRAIN NEOPLASM
     Route: 048
     Dates: start: 20121015
  5. KEPPRA [Concomitant]
     Indication: CONVULSION
     Route: 048
  6. CLOBAZAM [Concomitant]
     Indication: CONVULSION
     Dosage: 10 MG A.M.
     Route: 048
  7. CLOBAZAM [Concomitant]
     Dosage: 20 MG P.M.
     Route: 048
  8. ZOFRAN [Concomitant]
     Indication: NAUSEA
     Dosage: EVERY 8 HOURS PRN (WHEN REQUIRED)
     Route: 048
  9. SEPTRA DS [Concomitant]
     Indication: PROPHYLAXIS
     Dosage: HALF A TABLET
     Route: 048

REACTIONS (4)
  - Disease progression [Fatal]
  - Platelet count decreased [Recovered/Resolved]
  - Platelet count decreased [Not Recovered/Not Resolved]
  - Protein urine present [Unknown]
